FAERS Safety Report 23214248 (Version 1)
Quarter: 2023Q4

REPORT INFORMATION
  Report Type: Spontaneous
  Country: US (occurrence: None)
  Receive Date: 20231121
  Receipt Date: 20231121
  Transmission Date: 20240110
  Serious: Yes (Hospitalization)
  Sender: FDA-Public Use
  Company Number: None

PATIENT
  Age: 77 Year
  Sex: Male
  Weight: 123 kg

DRUGS (3)
  1. LINEZOLID [Suspect]
     Active Substance: LINEZOLID
     Indication: Cellulitis staphylococcal
     Dosage: FREQUENCY : TWICE A DAY;?
     Route: 048
     Dates: start: 20220904, end: 20221220
  2. LINEZOLID [Suspect]
     Active Substance: LINEZOLID
     Indication: Infection
  3. XARELTO [Concomitant]
     Active Substance: RIVAROXABAN
     Dates: start: 20131010, end: 20221220

REACTIONS (2)
  - Anaemia [None]
  - Thrombocytopenia [None]

NARRATIVE: CASE EVENT DATE: 20221220
